FAERS Safety Report 5748806-0 (Version None)
Quarter: 2008Q2

REPORT INFORMATION
  Report Type: 
  Country: None (occurrence: None)
  Receive Date: 20080521
  Receipt Date: 20080506
  Transmission Date: 20081010
  Serious: Yes (Death)
  Sender: FDA-Public Use
  Company Number: IDA-00052

PATIENT
  Age: 29 Year
  Sex: Male

DRUGS (1)
  1. INDERAL [Suspect]

REACTIONS (8)
  - CARDIO-RESPIRATORY ARREST [None]
  - COMPLETED SUICIDE [None]
  - DRUG TOXICITY [None]
  - FALL [None]
  - METABOLIC ACIDOSIS [None]
  - OVERDOSE [None]
  - PUPIL FIXED [None]
  - VOMITING [None]
